FAERS Safety Report 4356985-5 (Version None)
Quarter: 2004Q2

REPORT INFORMATION
  Report Type: 
  Country: None (occurrence: None)
  Receive Date: 20040507
  Receipt Date: 20040422
  Transmission Date: 20050107
  Serious: Yes (Hospitalization)
  Sender: FDA-Public Use
  Company Number: T04-USA-01873-01

PATIENT
  Age: 80 Year
  Sex: Male
  Weight: 63.6397 kg

DRUGS (13)
  1. MEMANTINE(OPEN LABEL, PHASE D) (MEMANTINE) [Suspect]
     Indication: DEMENTIA ALZHEIMER'S TYPE
     Dosage: 20 MG QD PO
     Route: 048
  2. MEMANTINE (0PEN LABEL, PHASE C) (MEMANTINE) [Suspect]
     Indication: DEMENTIA ALZHEIMER'S TYPE
     Dosage: 20 MG QD PO
     Route: 048
  3. MEMANTINE (0PEN LABEL, PHASE AB) (MEMANTINE) [Suspect]
     Indication: DEMENTIA ALZHEIMER'S TYPE
     Dosage: 20 MG QD PO
     Route: 048
     Dates: start: 20021023
  4. VITAMIN E (VEGETABLE OIL) [Concomitant]
  5. GINKGO BILOBA [Concomitant]
  6. ACETYLSALICYLIC ACID SRT [Concomitant]
  7. METAMUCIL-2 [Concomitant]
  8. MAALOX [Concomitant]
  9. GINSENG [Concomitant]
  10. NEXIUM [Concomitant]
  11. CIPROFLOXACIN XR (CIPROFLOXACIN) [Concomitant]
  12. MACROBID [Concomitant]
  13. DETROL [Concomitant]

REACTIONS (7)
  - BLADDER NEOPLASM [None]
  - CONSTIPATION [None]
  - DRUG INEFFECTIVE [None]
  - MOOD SWINGS [None]
  - STOMACH DISCOMFORT [None]
  - URINARY TRACT INFECTION [None]
  - VISUAL FIELD DEFECT [None]
